FAERS Safety Report 13823672 (Version 3)
Quarter: 2017Q4

REPORT INFORMATION
  Report Type: Spontaneous
  Country: GR (occurrence: GR)
  Receive Date: 20170802
  Receipt Date: 20171114
  Transmission Date: 20180320
  Serious: Yes (Other)
  Sender: FDA-Public Use
  Company Number: GR-BEH-2017082437

PATIENT
  Age: 78 Year
  Sex: Male
  Weight: 105 kg

DRUGS (9)
  1. LORDIN                             /00661202/ [Concomitant]
     Indication: PROPHYLAXIS
     Route: 065
  2. HEPARIN [Concomitant]
     Active Substance: HEPARIN SODIUM
     Route: 065
  3. ALGON [Concomitant]
     Route: 065
  4. T4 [Concomitant]
     Active Substance: LEVOTHYROXINE
     Dosage: 62 MG
     Route: 065
  5. PRIVIGEN [Suspect]
     Active Substance: HUMAN IMMUNOGLOBULIN G
     Indication: MYASTHENIA GRAVIS
     Dosage: 0.2 G/KG 100ML/8HRS
     Route: 042
     Dates: start: 20170721
  6. SODIUM CHLORIDE + DEXTROSE [Concomitant]
     Route: 065
  7. OLARTAN [Concomitant]
     Active Substance: OLMESARTAN MEDOXOMIL
     Indication: HYPERTENSION
     Route: 065
  8. LOPRESOR                           /00376902/ [Concomitant]
     Active Substance: METOPROLOL TARTRATE
     Indication: HYPERTENSION
     Route: 065
  9. MESTINON [Concomitant]
     Active Substance: PYRIDOSTIGMINE BROMIDE
     Route: 065

REACTIONS (2)
  - Hypertension [Recovered/Resolved]
  - Gamma-glutamyltransferase increased [Unknown]
